FAERS Safety Report 6747588-3 (Version None)
Quarter: 2010Q2

REPORT INFORMATION
  Report Type: 
  Country: None (occurrence: None)
  Receive Date: 20100526
  Receipt Date: 20100512
  Transmission Date: 20101027
  Serious: Yes (Other)
  Sender: FDA-Public Use
  Company Number: 2010SP019431

PATIENT
  Age: 78 Year
  Sex: Female
  Weight: 54 kg

DRUGS (6)
  1. DECA-DURABOLIN [Suspect]
     Indication: OSTEOPOROSIS
     Dosage: 50 MG;QM
     Dates: start: 19800101, end: 20100101
  2. THYROXIN [Concomitant]
  3. VITAMIN B-12 [Concomitant]
  4. METOPROLOL TARTRATE [Concomitant]
  5. NITROFURANTOIN [Concomitant]
  6. CALCIUM CARBONATE [Concomitant]

REACTIONS (3)
  - CIRCULATORY COLLAPSE [None]
  - FALL [None]
  - HIGH DENSITY LIPOPROTEIN INCREASED [None]
